FAERS Safety Report 6462090-4 (Version None)
Quarter: 2009Q4

REPORT INFORMATION
  Report Type: 
  Country: None (occurrence: None)
  Receive Date: 20091130
  Receipt Date: 20091119
  Transmission Date: 20100525
  Serious: Yes (Other)
  Sender: FDA-Public Use
  Company Number: CHPA2009US22378

PATIENT
  Age: 4 Year
  Sex: Male
  Weight: 17.234 kg

DRUGS (1)
  1. TRIAMINIC LONG ACTING COUGH (NCH) [Suspect]
     Dosage: UNK, UNK
     Route: 048

REACTIONS (3)
  - ABDOMINAL PAIN [None]
  - LIP SWELLING [None]
  - URTICARIA [None]
